FAERS Safety Report 18253661 (Version 3)
Quarter: 2020Q4

REPORT INFORMATION
  Report Type: Report from Study
  Country: DE (occurrence: DE)
  Receive Date: 20200910
  Receipt Date: 20201006
  Transmission Date: 20210113
  Serious: Yes (Hospitalization)
  Sender: FDA-Public Use
  Company Number: DE-CELGENEUS-DEU-20200108666

PATIENT
  Age: 8 Decade
  Sex: Male
  Weight: 89 kg

DRUGS (22)
  1. IXAZOMIB [Suspect]
     Active Substance: IXAZOMIB
     Indication: PLASMA CELL MYELOMA
     Dosage: 4 MILLIGRAM
     Route: 048
     Dates: start: 20190723, end: 20200116
  2. DEXAMETHASONE. [Suspect]
     Active Substance: DEXAMETHASONE
     Indication: PLASMA CELL MYELOMA
     Dosage: 40 MILLIGRAM
     Route: 048
     Dates: start: 20190723, end: 20200116
  3. AMLODIPIN [Concomitant]
     Active Substance: AMLODIPINE BESYLATE
     Indication: HYPERTENSION
     Dosage: 5 MILLIGRAM
     Route: 048
     Dates: start: 20140530
  4. CALCIUM D3 [Concomitant]
     Active Substance: CALCIUM\CHOLECALCIFEROL
     Indication: OSTEOPOROSIS PROPHYLAXIS
     Route: 048
     Dates: start: 20181204
  5. COTRIM FORTE [Concomitant]
     Active Substance: SULFAMETHOXAZOLE\TRIMETHOPRIM
     Indication: ANTIBIOTIC PROPHYLAXIS
     Route: 065
     Dates: start: 20181127
  6. ZOPICLON [Concomitant]
     Active Substance: ZOPICLONE
     Indication: SLEEP DISORDER
     Dosage: 7.5 MILLIGRAM
     Route: 048
     Dates: start: 20200123, end: 20200125
  7. NOVALGIN [Concomitant]
     Indication: PAIN PROPHYLAXIS
     Route: 048
     Dates: start: 20200123, end: 20200123
  8. NEBIVOLOL. [Concomitant]
     Active Substance: NEBIVOLOL
     Indication: HYPERTENSION
     Dosage: 5 MILLIGRAM
     Route: 048
     Dates: start: 20140530
  9. PROPOFOL. [Concomitant]
     Active Substance: PROPOFOL
     Indication: SEDATION
     Dosage: 340 MILLIGRAM
     Route: 041
     Dates: start: 20200129, end: 20200129
  10. VALSARTAN. [Concomitant]
     Active Substance: VALSARTAN
     Indication: HYPERTENSION
     Dosage: 160 MILLIGRAM
     Route: 048
     Dates: start: 20140530
  11. DENOSUMAB [Concomitant]
     Active Substance: DENOSUMAB
     Indication: OSTEOPOROSIS PROPHYLAXIS
     Dosage: 120 MILLIGRAM
     Route: 041
     Dates: start: 20180815
  12. PARACETAMOL [Concomitant]
     Active Substance: ACETAMINOPHEN
     Indication: PAIN PROPHYLAXIS
     Dosage: 500 MILLIGRAM
     Route: 048
     Dates: start: 20200123, end: 20200123
  13. ORALAV [Concomitant]
     Indication: COLONOSCOPY
     Dosage: 2000 MILLILITER
     Route: 048
     Dates: start: 20200128, end: 20200128
  14. POMALIDOMIDE [Suspect]
     Active Substance: POMALIDOMIDE
     Indication: PLASMA CELL MYELOMA
     Dosage: 4 MILLIGRAM
     Route: 048
     Dates: start: 20190723, end: 20200121
  15. ACICLOVIR [Concomitant]
     Active Substance: ACYCLOVIR
     Indication: ANTIVIRAL PROPHYLAXIS
     Dosage: 800 MILLIGRAM
     Route: 048
     Dates: start: 20140530
  16. SAB SIMPLEX [Concomitant]
     Indication: EPIGASTRIC DISCOMFORT
     Dosage: 1 MEASURING CUP
     Route: 048
     Dates: start: 20200125, end: 20200130
  17. TINZAPARIN [Concomitant]
     Active Substance: TINZAPARIN
     Indication: THROMBOSIS PROPHYLAXIS
     Dosage: 0.8 MILLILITER
     Route: 030
     Dates: start: 20180726
  18. DIASPORAL [Concomitant]
     Indication: MUSCLE SPASMS
     Dosage: 400 MILLIGRAM
     Route: 048
     Dates: start: 20190827
  19. TETANUS VACCINATION [Concomitant]
     Indication: TETANUS IMMUNISATION
     Dosage: 0.5 MILLILITER
     Route: 030
     Dates: start: 20200102, end: 20200102
  20. PNEUMOCOCCUS VACCINATION [Concomitant]
     Indication: INFECTION PROPHYLAXIS
     Dosage: 0.5 MILLILITRE
     Route: 030
     Dates: start: 20200102, end: 20200102
  21. NACL [Concomitant]
     Active Substance: SODIUM CHLORIDE
     Indication: RENAL FAILURE
     Dosage: 1000 MILLILITER
     Route: 041
     Dates: start: 20200123, end: 20200129
  22. PARACODIN [Concomitant]
     Indication: COUGH
     Dosage: 10 DROPS
     Route: 048
     Dates: start: 20200123, end: 20200125

REACTIONS (1)
  - Bronchiolitis [Recovered/Resolved]

NARRATIVE: CASE EVENT DATE: 20200123
